FAERS Safety Report 4282130-0 (Version None)
Quarter: 2004Q1

REPORT INFORMATION
  Report Type: 
  Country: None (occurrence: None)
  Receive Date: 20040130
  Receipt Date: 20031015
  Transmission Date: 20041129
  Serious: No
  Sender: FDA-Public Use
  Company Number: US-BRISTOL-MYERS SQUIBB COMPANY-12412250

PATIENT
  Age: 60 Year
  Sex: Male

DRUGS (19)
  1. TRAZODONE HCL [Suspect]
     Indication: CEREBROVASCULAR ACCIDENT
     Dosage: START 25MG QD AT HS ON 10/3/03; INCREASED TO 50MG QD ON 10/8/03.
     Route: 048
     Dates: start: 20031003
  2. TRAZODONE HCL [Suspect]
     Indication: RUPTURED CEREBRAL ANEURYSM
     Dosage: START 25MG QD AT HS ON 10/3/03; INCREASED TO 50MG QD ON 10/8/03.
     Route: 048
     Dates: start: 20031003
  3. TRAZODONE HCL [Suspect]
     Indication: SUBARACHNOID HAEMORRHAGE
     Dosage: START 25MG QD AT HS ON 10/3/03; INCREASED TO 50MG QD ON 10/8/03.
     Route: 048
     Dates: start: 20031003
  4. COLACE CAPS [Concomitant]
     Dosage: 1 CAPSULE/DAY
     Route: 048
  5. LOTENSIN [Concomitant]
  6. LOVENOX [Concomitant]
     Route: 058
  7. NORVASC [Concomitant]
     Dosage: AT HS
  8. SEROTONIN [Concomitant]
     Dosage: 100MG EVERY AM + 300 MG EVERY PM
  9. RANITIDINE [Concomitant]
  10. MULTI-VITAMIN [Concomitant]
     Dosage: 1 TABLET/DAY
     Route: 048
  11. VIOXX [Concomitant]
  12. DETROL [Concomitant]
  13. LEVAQUIN [Concomitant]
  14. XANAX [Concomitant]
     Dosage: EVERY 6 HRS AS NEEDED
  15. VICODIN [Concomitant]
     Dosage: 7.5MG/750MG Q 4 HRS. AS NEEDED
  16. MOM [Concomitant]
  17. TYLENOL SUPPOSITORIES [Concomitant]
     Dosage: SUPPOSITORY Q 6HRS AS NEEDED
     Route: 054
  18. BISACODYL SUPPOSITORY [Concomitant]
     Route: 054
  19. PROPOXYPHENE HCL [Concomitant]
     Dosage: 150-650 Q 4-6 HRS AS NEEDED

REACTIONS (3)
  - ABNORMAL BEHAVIOUR [None]
  - AGITATION [None]
  - DYSURIA [None]
